FAERS Safety Report 5402521-1 (Version None)
Quarter: 2007Q3

REPORT INFORMATION
  Report Type: 
  Country: None (occurrence: None)
  Receive Date: 20070801
  Receipt Date: 20061016
  Transmission Date: 20080115
  Serious: No
  Sender: FDA-Public Use
  Company Number: A0621813A

PATIENT
  Sex: Female

DRUGS (12)
  1. IMITREX [Suspect]
     Indication: MIGRAINE
     Dosage: 100MG AS REQUIRED
     Route: 048
  2. LIDODERM [Suspect]
     Indication: BACK PAIN
     Route: 062
  3. CYMBALTA [Suspect]
     Indication: DRUG USE FOR UNKNOWN INDICATION
  4. XANAX [Concomitant]
  5. TRAZODONE HCL [Concomitant]
  6. AMBIEN [Concomitant]
  7. PERCOCET [Concomitant]
  8. WELLBUTRIN XL [Concomitant]
  9. ZOLOFT [Concomitant]
  10. NIACIN [Concomitant]
  11. MULTIVITAMIN [Concomitant]
  12. DEXTROSTAT [Concomitant]

REACTIONS (8)
  - COGNITIVE DISORDER [None]
  - DISORIENTATION [None]
  - DRUG ADMINISTRATION ERROR [None]
  - DRUG INTERACTION [None]
  - GAIT DISTURBANCE [None]
  - HEADACHE [None]
  - HYPOAESTHESIA [None]
  - TOOTHACHE [None]
